FAERS Safety Report 14329087 (Version 1)
Quarter: 2017Q4

REPORT INFORMATION
  Report Type: Spontaneous
  Country: US (occurrence: US)
  Receive Date: 20171227
  Receipt Date: 20171227
  Transmission Date: 20180321
  Serious: Yes (Hospitalization, Other)
  Sender: FDA-Public Use
  Company Number: US-ASTRAZENECA-2017SF30235

PATIENT
  Age: 28658 Day
  Sex: Male

DRUGS (1)
  1. CASODEX [Suspect]
     Active Substance: BICALUTAMIDE
     Indication: PROSTATE CANCER
     Route: 048

REACTIONS (9)
  - Haematemesis [Unknown]
  - Skin cancer [Unknown]
  - Lung disorder [Unknown]
  - Hip fracture [Unknown]
  - Pulmonary embolism [Unknown]
  - Critical illness [Unknown]
  - Abscess [Unknown]
  - Gastrointestinal haemorrhage [Unknown]
  - Dysphagia [Unknown]

NARRATIVE: CASE EVENT DATE: 20070717
